FAERS Safety Report 11599009 (Version 1)
Quarter: 2015Q4

REPORT INFORMATION
  Report Type: Spontaneous
  Country: US (occurrence: US)
  Receive Date: 20151006
  Receipt Date: 20151006
  Transmission Date: 20160304
  Serious: No
  Sender: FDA-Public Use
  Company Number: US-PFIZER INC-2015317883

PATIENT
  Sex: Female
  Weight: 46 kg

DRUGS (1)
  1. NITROSTAT [Suspect]
     Active Substance: NITROGLYCERIN
     Indication: ANGINA PECTORIS
     Dosage: 0.4 MG, SINGLE
     Route: 060

REACTIONS (3)
  - Flushing [Unknown]
  - Vertigo [Recovered/Resolved]
  - Fall [Recovered/Resolved]
